FAERS Safety Report 9102814 (Version 2)
Quarter: 2014Q2

REPORT INFORMATION
  Report Type: Report from Study
  Country: JP (occurrence: JP)
  Receive Date: 20130219
  Receipt Date: 20140402
  Transmission Date: 20141212
  Serious: Yes (Death, Hospitalization, Disabling, Other)
  Sender: FDA-Public Use
  Company Number: JP-009507513-2011SP059210

PATIENT
  Age: 58 Year
  Sex: Female
  Weight: 60 kg

DRUGS (14)
  1. TEMOZOLOMIDE [Suspect]
     Indication: ANAPLASTIC ASTROCYTOMA
     Dosage: 75 MG/M2, QD
     Route: 048
     Dates: start: 20090723, end: 20090902
  2. TEMOZOLOMIDE [Suspect]
     Dosage: 150 MG/M2, QD
     Route: 048
     Dates: start: 20091003, end: 20091007
  3. TEMOZOLOMIDE [Suspect]
     Dosage: 200 MG/M2, QD
     Route: 048
     Dates: start: 20091101, end: 20091105
  4. TEMOZOLOMIDE [Suspect]
     Dosage: 150 MG/M2, QD
     Route: 048
     Dates: start: 20100215, end: 20100219
  5. TEMOZOLOMIDE [Suspect]
     Dosage: 150 MG/M2, QD
     Route: 048
     Dates: start: 20100410, end: 20100414
  6. TEMOZOLOMIDE [Suspect]
     Dosage: 200 MG/M2, QD
     Route: 048
     Dates: start: 20091128, end: 20091202
  7. TEMOZOLOMIDE [Suspect]
     Dosage: 200 MG/M2, QD
     Route: 048
     Dates: start: 20091225, end: 20091229
  8. BAKTAR [Concomitant]
     Indication: ANTIFUNGAL PROPHYLAXIS
     Dosage: DAILY DOSE UNKNOWN, FORMULATION POR
     Route: 048
     Dates: start: 20091225, end: 20100114
  9. BLOPRESS [Concomitant]
     Dosage: DAILY DOSE UNKNOWN
     Route: 048
  10. AMLODIN OD [Concomitant]
     Dosage: DAILY DOSE UNKNOWN
     Route: 048
  11. BASEN OD [Concomitant]
     Dosage: DAILY DOSE UNKNOWN
     Route: 048
     Dates: end: 20100128
  12. NAVOBAN [Concomitant]
     Indication: PROPHYLAXIS
     Dosage: DAILY DOSE UNKNOWN
     Route: 048
     Dates: start: 20090723, end: 20100414
  13. HUMULIN R [Concomitant]
     Dosage: DAILY DOSE UNKNOWN
     Route: 058
     Dates: start: 20100129, end: 20100204
  14. NOVOLIN 30R [Concomitant]
     Dosage: DAILY DOSE UNKNOWN
     Route: 058
     Dates: start: 20100204

REACTIONS (12)
  - Disease progression [Fatal]
  - Cholecystitis acute [Recovered/Resolved]
  - Hemiplegia [Recovering/Resolving]
  - Haematochezia [Recovering/Resolving]
  - Insomnia [Recovering/Resolving]
  - Sepsis [Recovered/Resolved]
  - Bone marrow failure [Recovering/Resolving]
  - Anaemia [Recovering/Resolving]
  - Delirium [Not Recovered/Not Resolved]
  - Subdural haematoma [Recovered/Resolved]
  - Convulsion [Recovered/Resolved]
  - Hemiplegia [Not Recovered/Not Resolved]
